FAERS Safety Report 6444033-2 (Version None)
Quarter: 2009Q4

REPORT INFORMATION
  Report Type: 
  Country: None (occurrence: None)
  Receive Date: 20091116
  Receipt Date: 20091116
  Transmission Date: 20100525
  Serious: Yes (Other)
  Sender: FDA-Public Use
  Company Number: None

PATIENT
  Sex: Female
  Weight: 61.4 kg

DRUGS (3)
  1. COLGATE VISIBLE WHITE SPARKLING MINT FLUORIDE TP [Suspect]
     Indication: ORAL INFECTION
     Dates: start: 20091015, end: 20091024
  2. CLINDAMYCIN [Suspect]
     Indication: ORAL INFECTION
     Dosage: 300MG 3 X DAILY 047 ORAL
     Route: 048
     Dates: start: 20091015, end: 20091024
  3. METRONIDAZOLE [Suspect]
     Indication: ORAL INFECTION
     Dosage: 500MG 2 X DAILY 047 ORAL
     Route: 048
     Dates: start: 20091025, end: 20091029

REACTIONS (2)
  - BURNING MOUTH SYNDROME [None]
  - DRUG INTERACTION [None]
